FAERS Safety Report 6525717-4 (Version None)
Quarter: 2010Q1

REPORT INFORMATION
  Report Type: 
  Country: None (occurrence: None)
  Receive Date: 20100104
  Receipt Date: 20091224
  Transmission Date: 20100710
  Serious: Yes (Other)
  Sender: FDA-Public Use
  Company Number: US-MYLANLABS-2009S1021958

PATIENT
  Age: 68 Year
  Sex: Male
  Weight: 65.82 kg

DRUGS (9)
  1. TARCEVA [Suspect]
     Indication: PANCREATIC CARCINOMA
     Route: 048
  2. TARCEVA [Suspect]
     Route: 048
  3. XELODA [Suspect]
     Indication: PANCREATIC CARCINOMA
     Route: 048
  4. XELODA [Suspect]
     Route: 048
  5. FENTANYL CITRATE [Suspect]
  6. GEMCITABINE [Concomitant]
  7. ONDANSETRON [Concomitant]
     Indication: NAUSEA
  8. STOOL SOFTENER [Concomitant]
  9. LAXATIVE [Concomitant]

REACTIONS (9)
  - BLISTER [None]
  - CELL MARKER INCREASED [None]
  - CONSTIPATION [None]
  - MALIGNANT NEOPLASM PROGRESSION [None]
  - NAUSEA [None]
  - PAIN [None]
  - RASH [None]
  - STOMATITIS [None]
  - WEIGHT FLUCTUATION [None]
